FAERS Safety Report 10104245 (Version 1)
Quarter: 2014Q2

REPORT INFORMATION
  Report Type: Spontaneous
  Country: US (occurrence: US)
  Receive Date: 20140424
  Receipt Date: 20140424
  Transmission Date: 20141212
  Serious: No
  Sender: FDA-Public Use
  Company Number: US-009507513-1404USA004212

PATIENT
  Sex: Female

DRUGS (1)
  1. CLARITIN REDITABS 12HR [Suspect]
     Indication: HYPERSENSITIVITY
     Dosage: 1ST PILL 6 HOURS AGO
     Route: 048

REACTIONS (1)
  - Drug effect incomplete [Unknown]
